FAERS Safety Report 23239028 (Version 2)
Quarter: 2023Q4

REPORT INFORMATION
  Report Type: Spontaneous
  Country: US (occurrence: US)
  Receive Date: 20231129
  Receipt Date: 20231220
  Transmission Date: 20240109
  Serious: Yes (Other)
  Sender: FDA-Public Use
  Company Number: US-SA-SAC20231127000823

PATIENT
  Age: 65 Year
  Sex: Male

DRUGS (3)
  1. DUPIXENT [Suspect]
     Active Substance: DUPILUMAB
     Indication: Dermatitis atopic
     Dosage: 600 MG, 1X
     Route: 058
     Dates: start: 20230914, end: 20230914
  2. DUPIXENT [Suspect]
     Active Substance: DUPILUMAB
     Indication: Eczema
     Dosage: 300 MG, QOW
     Route: 058
     Dates: start: 2023, end: 2023
  3. DUPIXENT [Suspect]
     Active Substance: DUPILUMAB
     Dosage: 300 MG, QOW
     Route: 058
     Dates: start: 20231212

REACTIONS (5)
  - Pneumonia [Unknown]
  - Pleurisy [Unknown]
  - Pain [Unknown]
  - Insomnia [Unknown]
  - Eczema [Recovering/Resolving]

NARRATIVE: CASE EVENT DATE: 20230101
